FAERS Safety Report 23275564 (Version 1)
Quarter: 2023Q4

REPORT INFORMATION
  Report Type: Spontaneous
  Country: US (occurrence: US)
  Receive Date: 20231208
  Receipt Date: 20231208
  Transmission Date: 20240110
  Serious: No
  Sender: FDA-Public Use
  Company Number: US-LUPIN PHARMACEUTICALS INC.-2023-10946

PATIENT

DRUGS (1)
  1. QUETIAPINE [Suspect]
     Active Substance: QUETIAPINE
     Indication: Insomnia
     Dosage: UNK
     Route: 065

REACTIONS (5)
  - Akathisia [Recovered/Resolved]
  - Product quality issue [Unknown]
  - Reaction to excipient [None]
  - Drug effective for unapproved indication [None]
  - Product use in unapproved indication [Unknown]
